FAERS Safety Report 8652012 (Version 2)
Quarter: 2013Q2

REPORT INFORMATION
  Report Type: Spontaneous
  Country: BR (occurrence: BR)
  Receive Date: 20120706
  Receipt Date: 20130416
  Transmission Date: 20140414
  Serious: Yes (Death, Other)
  Sender: FDA-Public Use
  Company Number: BR-AMGEN-BRASP2012040711

PATIENT
  Age: 70 Year
  Sex: Female
  Weight: 63 kg

DRUGS (6)
  1. ENBREL [Suspect]
     Indication: RHEUMATOID ARTHRITIS
     Dosage: 50 MG, ONCE WEEKLY
     Route: 058
     Dates: start: 201207
  2. CAPTOPRIL [Concomitant]
     Indication: HYPERTENSION
     Dosage: 2 TABLETS OF 2.5MG EACH 3 HOURS (8X/DAY)
  3. INSULIN [Concomitant]
     Indication: DIABETES MELLITUS
     Dosage: UNK
  4. NIFEDIPINE [Concomitant]
     Indication: HYPERTENSION
     Dosage: UNSPECIFIED DOSAGE, 1X/DAY
  5. CEBRALAT [Concomitant]
     Indication: PERIPHERAL VASCULAR DISORDER
     Dosage: UNSPECIFIED DOSAGE, 1X/DAY
  6. PREDNISONE [Concomitant]
     Dosage: 2.5 MG, 1X/DAY

REACTIONS (3)
  - Infarction [Fatal]
  - Gait disturbance [Unknown]
  - Bone disorder [Unknown]
